FAERS Safety Report 6209664-3 (Version None)
Quarter: 2009Q2

REPORT INFORMATION
  Report Type: 
  Country: None (occurrence: None)
  Receive Date: 20090601
  Receipt Date: 20090521
  Transmission Date: 20091009
  Serious: Yes (Death, Life-Threatening, Hospitalization, Other)
  Sender: FDA-Public Use
  Company Number: JP-BAYER-200911664BYL

PATIENT
  Age: 41 Year
  Sex: Male
  Weight: 59 kg

DRUGS (15)
  1. FLUDARA [Suspect]
     Indication: CORD BLOOD TRANSPLANT THERAPY
     Dosage: UNIT DOSE: 50 MG
     Route: 041
     Dates: start: 20080523, end: 20080527
  2. ALKERAN [Concomitant]
     Indication: CORD BLOOD TRANSPLANT THERAPY
     Route: 042
     Dates: start: 20080526, end: 20080527
  3. THIOTEPA [Concomitant]
     Indication: CORD BLOOD TRANSPLANT THERAPY
     Route: 042
     Dates: start: 20080522, end: 20080522
  4. PROGRAF [Concomitant]
     Indication: PROPHYLAXIS AGAINST GRAFT VERSUS HOST DISEASE
     Route: 065
     Dates: start: 20080528, end: 20080529
  5. PROGRAF [Concomitant]
     Route: 065
     Dates: start: 20080531, end: 20080601
  6. PROGRAF [Concomitant]
     Route: 065
     Dates: start: 20080725, end: 20080730
  7. PROGRAF [Concomitant]
     Route: 065
     Dates: start: 20080604, end: 20080605
  8. PROGRAF [Concomitant]
     Route: 065
     Dates: start: 20080703, end: 20080707
  9. PROGRAF [Concomitant]
     Route: 065
     Dates: start: 20080719, end: 20080724
  10. PROGRAF [Concomitant]
     Route: 065
     Dates: start: 20080708, end: 20080718
  11. PROGRAF [Concomitant]
     Route: 065
     Dates: start: 20080530, end: 20080530
  12. OMEGACIN [Concomitant]
     Indication: INFECTION PROPHYLAXIS
  13. VFEND [Concomitant]
     Indication: INFECTION PROPHYLAXIS
  14. CONCENTRATED RED CELLS [Concomitant]
     Indication: PACKED RED BLOOD CELL TRANSFUSION
     Route: 042
     Dates: start: 20080523, end: 20080730
  15. PLATELETS [Concomitant]
     Indication: PLATELET TRANSFUSION
     Route: 042
     Dates: start: 20080523, end: 20080730

REACTIONS (10)
  - ACUTE GRAFT VERSUS HOST DISEASE [None]
  - CYSTITIS HAEMORRHAGIC [None]
  - DIFFUSE ALVEOLAR DAMAGE [None]
  - GASTRITIS HAEMORRHAGIC [None]
  - OESOPHAGITIS HAEMORRHAGIC [None]
  - PNEUMONIA VIRAL [None]
  - PULMONARY ALVEOLAR HAEMORRHAGE [None]
  - RENAL IMPAIRMENT [None]
  - SEPSIS [None]
  - SEPTIC SHOCK [None]
